FAERS Safety Report 7714024-X (Version None)
Quarter: 2011Q3

REPORT INFORMATION
  Report Type: 
  Country: None (occurrence: None)
  Receive Date: 20110826
  Receipt Date: 20110812
  Transmission Date: 20111222
  Serious: Yes (Hospitalization, Other)
  Sender: FDA-Public Use
  Company Number: DE-ARROW GEN-2011-12681

PATIENT
  Sex: Male
  Weight: 3.07 kg

DRUGS (10)
  1. SERTRALINE HYDROCHLORIDE [Suspect]
     Indication: DEPRESSION
     Dosage: 150 MG/D, FROM WEEK 11 REDUCTION TO 100 MG/D
     Route: 064
     Dates: start: 20100208, end: 20101112
  2. SERTRALINE HYDROCHLORIDE [Suspect]
     Dosage: 150 MG, DAILY
     Route: 048
     Dates: start: 20100805, end: 20100806
  3. SERTRALINE HYDROCHLORIDE [Suspect]
     Dosage: 150 MG, DAILY
     Route: 048
     Dates: start: 20100708, end: 20100712
  4. IODINE [Concomitant]
     Indication: AUTOIMMUNE THYROIDITIS
     Dosage: 150 ?G, DAILY
     Route: 064
     Dates: start: 20100508, end: 20101112
  5. SERTRALINE HYDROCHLORIDE [Suspect]
     Dosage: 100 MG, DAILY
     Dates: start: 20100807
  6. LEVOTHYROXINE SODIUM [Concomitant]
     Indication: AUTOIMMUNE THYROIDITIS
     Dosage: 150 ?G, DAILY, SINCE 3 YEARS
     Route: 064
     Dates: start: 20100208, end: 20100507
  7. THYROXIN [Concomitant]
     Indication: AUTOIMMUNE THYROIDITIS
     Dosage: 137.5 ?G, DAILY
     Route: 064
     Dates: start: 20100508, end: 20101112
  8. FOLIC ACID [Concomitant]
     Indication: PROPHYLAXIS OF NEURAL TUBE DEFECT
     Dosage: 0.4 MG, DAILY
     Route: 064
     Dates: start: 20100208, end: 20100512
  9. SERTRALINE HYDROCHLORIDE [Suspect]
     Dosage: 100 MG, DAILY
     Route: 048
     Dates: start: 20100609, end: 20100707
  10. SERTRALINE HYDROCHLORIDE [Suspect]
     Dosage: 200 MG, DAILY
     Route: 048
     Dates: start: 20100713, end: 20100804

REACTIONS (4)
  - BRADYCARDIA NEONATAL [None]
  - NEONATAL RESPIRATORY ACIDOSIS [None]
  - NEONATAL RESPIRATORY DISTRESS SYNDROME [None]
  - TORTICOLLIS [None]
